FAERS Safety Report 5445945-9 (Version None)
Quarter: 2007Q3

REPORT INFORMATION
  Report Type: 
  Country: None (occurrence: None)
  Receive Date: 20070904
  Receipt Date: 20070830
  Transmission Date: 20080115
  Serious: Yes (Death, Hospitalization)
  Sender: FDA-Public Use
  Company Number: 2007SP017494

PATIENT
  Age: 67 Year
  Sex: Male
  Weight: 50 kg

DRUGS (9)
  1. TEMODAL [Suspect]
     Indication: ANAPLASTIC ASTROCYTOMA
     Dosage: 120 MG/M2; QD; PO, 120 MG/M2; QD; PO
     Route: 048
     Dates: start: 20070416, end: 20070419
  2. TEMODAL [Suspect]
     Indication: ANAPLASTIC ASTROCYTOMA
     Dosage: 120 MG/M2; QD; PO, 120 MG/M2; QD; PO
     Route: 048
     Dates: start: 20070423, end: 20070525
  3. BAKTAR [Concomitant]
  4. GLYCEOL [Concomitant]
  5. DECADRON [Concomitant]
  6. NAUZELIN [Concomitant]
  7. DAI-KENCHU-TO [Concomitant]
  8. MAGMITT [Concomitant]
  9. FAMOTIDINE [Concomitant]

REACTIONS (4)
  - GASTROINTESTINAL PERFORATION [None]
  - NEUTROPHIL COUNT DECREASED [None]
  - SEPTIC SHOCK [None]
  - WHITE BLOOD CELL COUNT INCREASED [None]
